FAERS Safety Report 15225235 (Version 3)
Quarter: 2018Q4

REPORT INFORMATION
  Report Type: Spontaneous
  Country: US (occurrence: US)
  Receive Date: 20180801
  Receipt Date: 20181031
  Transmission Date: 20190204
  Serious: No
  Sender: FDA-Public Use
  Company Number: US-BIOGEN-2018BI00615535

PATIENT
  Age: 33 Year
  Sex: Female

DRUGS (1)
  1. AVONEX [Suspect]
     Active Substance: INTERFERON BETA-1A
     Indication: RELAPSING-REMITTING MULTIPLE SCLEROSIS
     Route: 065
     Dates: start: 201406, end: 201509

REACTIONS (4)
  - White blood cell count decreased [Recovered/Resolved]
  - Treatment failure [Unknown]
  - Neutropenia [Unknown]
  - Injection site reaction [Unknown]

NARRATIVE: CASE EVENT DATE: 201509
